FAERS Safety Report 24924393 (Version 1)
Quarter: 2025Q1

REPORT INFORMATION
  Report Type: Other
  Country: CA (occurrence: CA)
  Receive Date: 20250204
  Receipt Date: 20250204
  Transmission Date: 20250409
  Serious: Yes (Other)
  Sender: Atnahs Healthcare
  Company Number: CA-ATNAHS-ATNAHS20250100681

PATIENT
  Age: 21 Year
  Sex: Male

DRUGS (17)
  1. NAPROXEN [Suspect]
     Active Substance: NAPROXEN
     Indication: Familial mediterranean fever
  2. CANDESARTAN [Suspect]
     Active Substance: CANDESARTAN
     Indication: Familial mediterranean fever
     Dosage: 2 MG, 1X/DAY
  3. COLCHICINE [Suspect]
     Active Substance: COLCHICINE
     Indication: Familial mediterranean fever
     Dosage: 0.6 MG, 3X/DAY
  4. FAMOTIDINE [Suspect]
     Active Substance: FAMOTIDINE
     Indication: Familial mediterranean fever
     Dosage: 40 MG, 1X/DAY
  5. FOLIC ACID [Suspect]
     Active Substance: FOLIC ACID
     Indication: Familial mediterranean fever
     Dosage: 4 MG, 1X/DAY
  6. ONDANSETRON [Suspect]
     Active Substance: ONDANSETRON
     Indication: Familial mediterranean fever
  7. ZOFRAN [Suspect]
     Active Substance: ONDANSETRON HYDROCHLORIDE
     Indication: Familial mediterranean fever
  8. DEXILANT [Concomitant]
     Active Substance: DEXLANSOPRAZOLE
     Indication: Product used for unknown indication
  9. FLUDROCORTISONE [Concomitant]
     Active Substance: FLUDROCORTISONE
     Indication: Product used for unknown indication
  10. GABAPENTIN [Concomitant]
     Active Substance: GABAPENTIN
     Indication: Product used for unknown indication
  11. IVABRADINE HYDROCHLORIDE [Concomitant]
     Active Substance: IVABRADINE HYDROCHLORIDE
     Indication: Product used for unknown indication
  12. KINERET [Concomitant]
     Active Substance: ANAKINRA
     Indication: Product used for unknown indication
  13. MIDODRINE [Concomitant]
     Active Substance: MIDODRINE
     Indication: Product used for unknown indication
  14. PRUCALOPRIDE SUCCINATE [Concomitant]
     Active Substance: PRUCALOPRIDE SUCCINATE
     Indication: Product used for unknown indication
  15. SULFASALAZINE [Concomitant]
     Active Substance: SULFASALAZINE
     Indication: Product used for unknown indication
  16. ASCORBIC ACID [Concomitant]
     Active Substance: ASCORBIC ACID
     Indication: Product used for unknown indication
  17. ERGOCALCIFEROL [Concomitant]
     Active Substance: ERGOCALCIFEROL
     Indication: Product used for unknown indication

REACTIONS (2)
  - Serum amyloid A protein increased [Unknown]
  - Off label use [Unknown]
